FAERS Safety Report 7742733-5 (Version None)
Quarter: 2011Q3

REPORT INFORMATION
  Report Type: 
  Country: None (occurrence: None)
  Receive Date: 20110912
  Receipt Date: 20110905
  Transmission Date: 20111222
  Serious: Yes (Other)
  Sender: FDA-Public Use
  Company Number: JP-SANOFI-AVENTIS-2011SA057939

PATIENT

DRUGS (2)
  1. LASIX [Suspect]
     Route: 065
  2. LASIX [Suspect]
     Route: 065

REACTIONS (3)
  - OVERDOSE [None]
  - DYSURIA [None]
  - RENAL FAILURE [None]
